FAERS Safety Report 16822774 (Version 1)
Quarter: 2019Q3

REPORT INFORMATION
  Report Type: Spontaneous
  Country: US (occurrence: US)
  Receive Date: 20190918
  Receipt Date: 20190918
  Transmission Date: 20191005
  Serious: Yes (Hospitalization, Other)
  Sender: FDA-Public Use
  Company Number: US-PFIZER INC-2019385895

PATIENT
  Age: 26 Year
  Sex: Female

DRUGS (1)
  1. BICILLIN C-R 900/300 [Suspect]
     Active Substance: PENICILLIN G BENZATHINE\PENICILLIN G PROCAINE
     Indication: PHARYNGITIS STREPTOCOCCAL
     Dosage: UNK UNK, SINGLE
     Route: 030

REACTIONS (1)
  - Embolia cutis medicamentosa [Unknown]
